FAERS Safety Report 17411995 (Version 1)
Quarter: 2020Q1

REPORT INFORMATION
  Report Type: Spontaneous
  Country: US (occurrence: US)
  Receive Date: 20200128
  Receipt Date: 20200128
  Transmission Date: 20200409
  Serious: Yes (Death, Life-Threatening, Hospitalization, Disabling, Other)
  Sender: FDA-Public Use
  Company Number: None

PATIENT
  Age: 75 Year
  Sex: Male
  Weight: 88.91 kg

DRUGS (5)
  1. VITAMIN C [Concomitant]
     Active Substance: ASCORBIC ACID
  2. GABAPENTIN. [Suspect]
     Active Substance: GABAPENTIN
     Indication: NEUROPATHY PERIPHERAL
     Dates: start: 2013, end: 2019
  3. SIMVASTATIN. [Concomitant]
     Active Substance: SIMVASTATIN
  4. MULTI VIT [Concomitant]
     Active Substance: VITAMINS
  5. HYDROCHLORIZIDE [Concomitant]

REACTIONS (2)
  - Loss of personal independence in daily activities [None]
  - Amnesia [None]
